FAERS Safety Report 8360417-X (Version None)
Quarter: 2012Q2

REPORT INFORMATION
  Report Type: 
  Country: None (occurrence: None)
  Receive Date: 20120515
  Receipt Date: 20120509
  Transmission Date: 20120825
  Serious: Yes (Other)
  Sender: FDA-Public Use
  Company Number: FR-PFIZER INC-2012108401

PATIENT
  Age: 20 Year
  Sex: Female

DRUGS (2)
  1. LYRICA [Suspect]
     Indication: SPINAL CORD DISORDER
     Dosage: UNK
     Dates: start: 20120401, end: 20120430
  2. LYRICA [Suspect]
     Indication: MYELITIS

REACTIONS (7)
  - HEMIPLEGIA [None]
  - HYPERHIDROSIS [None]
  - VERTIGO [None]
  - NAUSEA [None]
  - ABDOMINAL DISTENSION [None]
  - VISION BLURRED [None]
  - HEADACHE [None]
